APPROVED DRUG PRODUCT: CARBIDOPA, LEVODOPA AND ENTACAPONE
Active Ingredient: CARBIDOPA; ENTACAPONE; LEVODOPA
Strength: 50MG;200MG;200MG
Dosage Form/Route: TABLET;ORAL
Application: A090833 | Product #005
Applicant: WOCKHARDT LTD
Approved: Nov 20, 2012 | RLD: No | RS: No | Type: DISCN